FAERS Safety Report 11875531 (Version 1)
Quarter: 2015Q4

REPORT INFORMATION
  Report Type: Spontaneous
  Country: CN (occurrence: CN)
  Receive Date: 20151229
  Receipt Date: 20151229
  Transmission Date: 20160305
  Serious: Yes (Other)
  Sender: FDA-Public Use
  Company Number: CN-PFIZER INC-2015410179

PATIENT
  Sex: Male

DRUGS (1)
  1. GLUCOTROL XL [Suspect]
     Active Substance: GLIPIZIDE
     Indication: DIABETES MELLITUS
     Dosage: UNK
     Route: 048
     Dates: start: 201511, end: 201511

REACTIONS (5)
  - Starvation [Unknown]
  - Discomfort [Unknown]
  - Hypoglycaemia [Unknown]
  - Asthenia [Unknown]
  - Hyperhidrosis [Unknown]
